FAERS Safety Report 5278133-X (Version None)
Quarter: 2007Q1

REPORT INFORMATION
  Report Type: 
  Country: None (occurrence: None)
  Receive Date: 20061213
  Receipt Date: 20040923
  Transmission Date: 20070707
  Serious: Yes (Other)
  Sender: FDA-Public Use
  Company Number: 2004UW17774

PATIENT
  Age: 53 Year
  Sex: Female
  Weight: 79.3795 kg

DRUGS (3)
  1. SEROQUEL [Suspect]
     Indication: AFFECTIVE DISORDER
     Dosage: 200 MG QD PO
     Route: 048
     Dates: start: 20040817, end: 20040817
  2. SEROQUEL [Suspect]
     Indication: AFFECTIVE DISORDER
     Dosage: 100 MG QD PO
     Route: 048
     Dates: start: 20040817, end: 20040817
  3. TRILEPTAL [Concomitant]

REACTIONS (5)
  - CHEST DISCOMFORT [None]
  - CHEST PAIN [None]
  - DYSPNOEA [None]
  - INCORRECT DOSE ADMINISTERED [None]
  - SEDATION [None]
